FAERS Safety Report 25981650 (Version 1)
Quarter: 2025Q4

REPORT INFORMATION
  Report Type: Report from Study
  Country: US (occurrence: US)
  Receive Date: 20251031
  Receipt Date: 20251031
  Transmission Date: 20260118
  Serious: Yes (Other)
  Sender: ABBVIE
  Company Number: US-ABBVIE-6511706

PATIENT
  Age: 61 Year
  Sex: Male

DRUGS (4)
  1. CREON [Suspect]
     Active Substance: PANCRELIPASE AMYLASE\PANCRELIPASE LIPASE\PANCRELIPASE PROTEASE
     Indication: Pancreatic failure
     Dosage: FORM STRENGTH: 36000 UNITS ?FREQUENCY: ONE CAPSULE THREE TIMES A DAY.
     Route: 048
     Dates: start: 20241001
  2. CREON [Suspect]
     Active Substance: PANCRELIPASE AMYLASE\PANCRELIPASE LIPASE\PANCRELIPASE PROTEASE
     Indication: Pancreatic failure
     Dosage: FORM STRENGTH: 24,000 UNITS ?FREQUENCY: ONE CAPSULE SIX TIMES A DAY
     Route: 048
     Dates: start: 20251014
  3. CREON [Suspect]
     Active Substance: PANCRELIPASE AMYLASE\PANCRELIPASE LIPASE\PANCRELIPASE PROTEASE
     Indication: Pancreatic failure
     Dosage: FORM STRENGTH: 24,000 UNITS?FREQUENCY: ONE CAPSULE FOUR TIMES A DAY
     Route: 048
  4. OFEV [Suspect]
     Active Substance: NINTEDANIB
     Indication: Pulmonary fibrosis
     Dosage: FREQUENCY: FOUR TABLETS A DAY
     Route: 048

REACTIONS (5)
  - Pulmonary fibrosis [Unknown]
  - Abdominal pain upper [Recovered/Resolved]
  - Coeliac disease [Unknown]
  - Flatulence [Recovered/Resolved]
  - Diabetes mellitus [Unknown]
